FAERS Safety Report 6156534-5 (Version None)
Quarter: 2009Q2

REPORT INFORMATION
  Report Type: 
  Country: None (occurrence: None)
  Receive Date: 20090416
  Receipt Date: 20090403
  Transmission Date: 20091009
  Serious: Yes (Hospitalization)
  Sender: FDA-Public Use
  Company Number: DE-TEVA-190544ISR

PATIENT

DRUGS (12)
  1. FLUOROURACIL [Suspect]
     Indication: COLORECTAL CANCER
     Route: 042
     Dates: start: 20090127
  2. FOLINIC ACID [Suspect]
     Indication: COLORECTAL CANCER
     Route: 042
     Dates: start: 20090127
  3. IRINOTECAN HCL [Suspect]
     Indication: COLORECTAL CANCER
     Route: 042
  4. BEVACIZUMAB [Suspect]
     Indication: COLORECTAL CANCER
     Route: 042
  5. LOSARTAN POTASSIUM [Concomitant]
  6. CARVEDILOL [Concomitant]
  7. PREDNISOLONE [Concomitant]
  8. ESOMEPRAZOLE MAGNESIUM [Concomitant]
  9. ACETYLSALICYLIC ACID SRT [Concomitant]
  10. ALLOPURINOL [Concomitant]
  11. TAMSULOSIN HCL [Concomitant]
  12. FLUVASTATIN SODIUM [Concomitant]

REACTIONS (1)
  - CIRCULATORY COLLAPSE [None]
